FAERS Safety Report 10403686 (Version 2)
Quarter: 2014Q3

REPORT INFORMATION
  Report Type: Spontaneous
  Country: US (occurrence: US)
  Receive Date: 20140822
  Receipt Date: 20140822
  Transmission Date: 20150326
  Serious: No
  Sender: FDA-Public Use
  Company Number: US-ELI_LILLY_AND_COMPANY-US201307000674

PATIENT
  Age: 51 Year
  Sex: Male
  Weight: 97.05 kg

DRUGS (1)
  1. AXIRON [Suspect]
     Active Substance: TESTOSTERONE
     Indication: BLOOD TESTOSTERONE DECREASED
     Dosage: 60 MG, QD
     Route: 061
     Dates: start: 201207, end: 20130703

REACTIONS (5)
  - Heat stroke [Recovered/Resolved]
  - Fatigue [Recovered/Resolved]
  - Underdose [Recovered/Resolved]
  - Hyperhidrosis [Recovered/Resolved]
  - Application site pain [Recovered/Resolved]

NARRATIVE: CASE EVENT DATE: 20130703
